FAERS Safety Report 5167131-2 (Version None)
Quarter: 2006Q4

REPORT INFORMATION
  Report Type: 
  Country: None (occurrence: None)
  Receive Date: 20061207
  Receipt Date: 20061129
  Transmission Date: 20070319
  Serious: Yes (Death)
  Sender: FDA-Public Use
  Company Number: US-JNJFOC-20060806478

PATIENT
  Sex: Male
  Weight: 68.04 kg

DRUGS (4)
  1. DURAGESIC-100 [Suspect]
     Route: 062
     Dates: start: 20060701
  2. DURAGESIC-100 [Suspect]
     Indication: SPINAL FRACTURE
     Route: 062
     Dates: start: 20060701
  3. DURAGESIC-100 [Suspect]
     Indication: BACK PAIN
     Route: 062
     Dates: start: 20060701
  4. DARVOCET [Concomitant]
     Route: 065
     Dates: start: 20050101

REACTIONS (5)
  - ARTHRALGIA [None]
  - DEATH [None]
  - DIZZINESS [None]
  - HYPERSOMNIA [None]
  - INCORRECT DRUG ADMINISTRATION DURATION [None]
